FAERS Safety Report 6324942-5 (Version None)
Quarter: 2009Q3

REPORT INFORMATION
  Report Type: 
  Country: None (occurrence: None)
  Receive Date: 20090824
  Receipt Date: 20090608
  Transmission Date: 20100115
  Serious: No
  Sender: FDA-Public Use
  Company Number: US-ABBOTT-09P-163-0581047-00

PATIENT
  Sex: Female

DRUGS (4)
  1. NIASPAN [Suspect]
     Indication: BLOOD CHOLESTEROL
     Dosage: ONCE
     Route: 048
     Dates: start: 20080401, end: 20080401
  2. GEMFIBROZIL [Suspect]
     Indication: BLOOD CHOLESTEROL
     Dosage: ONCE DAILY
     Route: 048
     Dates: start: 20080401
  3. ASPIRIN [Concomitant]
     Indication: DRUG USE FOR UNKNOWN INDICATION
  4. DIOVAN [Concomitant]
     Indication: DRUG USE FOR UNKNOWN INDICATION
     Dosage: 320/25MG ONCE DAILY

REACTIONS (1)
  - ABDOMINAL PAIN UPPER [None]
